FAERS Safety Report 5685232-7 (Version None)
Quarter: 2008Q1

REPORT INFORMATION
  Report Type: 
  Country: None (occurrence: None)
  Receive Date: 20080328
  Receipt Date: 20080317
  Transmission Date: 20080703
  Serious: Yes (Disabling, Congenital Anomaly, Other)
  Sender: FDA-Public Use
  Company Number: US-ELI_LILLY_AND_COMPANY-US200705001856

PATIENT
  Sex: Female

DRUGS (2)
  1. PROZAC [Suspect]
     Dosage: 10 MG, DAILY (1/D)
     Route: 064
     Dates: end: 20000101
  2. PAXIL [Concomitant]
     Dosage: 20 MG, DAILY (1/D)
     Route: 064
     Dates: start: 19990101

REACTIONS (10)
  - CONSTIPATION [None]
  - DEVELOPMENTAL DELAY [None]
  - DRUG EXPOSURE DURING PREGNANCY [None]
  - DYSLEXIA [None]
  - ENAMEL ANOMALY [None]
  - FEEDING DISORDER NEONATAL [None]
  - HIP DYSPLASIA [None]
  - HYPOTONIA [None]
  - LEARNING DISABILITY [None]
  - VOMITING [None]
